FAERS Safety Report 19570297 (Version 2)
Quarter: 2021Q4

REPORT INFORMATION
  Report Type: Report from Study
  Country: CA (occurrence: CA)
  Receive Date: 20210716
  Receipt Date: 20211007
  Transmission Date: 20220303
  Serious: Yes (Hospitalization)
  Sender: FDA-Public Use
  Company Number: CA-CHIESI-2021CHF03470

PATIENT
  Age: 62 Year
  Sex: Female

DRUGS (2)
  1. DEFERIPRONE [Suspect]
     Active Substance: DEFERIPRONE
     Indication: Aplasia pure red cell
     Dosage: UNK, BID
     Route: 048
     Dates: start: 20200414, end: 20210621
  2. DEFERIPRONE [Suspect]
     Active Substance: DEFERIPRONE
     Indication: Off label use

REACTIONS (4)
  - Infection [Unknown]
  - White blood cell count increased [Not Recovered/Not Resolved]
  - Off label use [Recovered/Resolved]
  - Off label use [Recovered/Resolved]

NARRATIVE: CASE EVENT DATE: 20200414
